FAERS Safety Report 7888971-2 (Version None)
Quarter: 2011Q4

REPORT INFORMATION
  Report Type: 
  Country: None (occurrence: None)
  Receive Date: 20111103
  Receipt Date: 20111027
  Transmission Date: 20120403
  Serious: Yes (Other)
  Sender: FDA-Public Use
  Company Number: CA-NAPPMUNDI-CAN-2009-0000983

PATIENT
  Age: 35 Year
  Sex: Male

DRUGS (6)
  1. ALCOHOL [Suspect]
     Indication: PRODUCT USED FOR UNKNOWN INDICATION
  2. PERCOCET [Suspect]
     Indication: PRODUCT USED FOR UNKNOWN INDICATION
  3. OXYCONTIN [Suspect]
     Indication: PRODUCT USED FOR UNKNOWN INDICATION
     Dosage: UNK UNK, DAILY
     Route: 065
  4. OXYCONTIN [Suspect]
     Indication: PRODUCT USED FOR UNKNOWN INDICATION
     Dosage: 20 TABLET, DAILY
     Route: 065
  5. COCAINE [Suspect]
     Indication: PRODUCT USED FOR UNKNOWN INDICATION
  6. MARIJUANA [Suspect]
     Indication: PRODUCT USED FOR UNKNOWN INDICATION
     Route: 055

REACTIONS (14)
  - EUPHORIC MOOD [None]
  - DRUG DEPENDENCE [None]
  - PAIN [None]
  - OVERDOSE [None]
  - SUBSTANCE ABUSE [None]
  - DRUG WITHDRAWAL SYNDROME [None]
  - CYANOSIS [None]
  - OVERWEIGHT [None]
  - PALLOR [None]
  - HYPOAESTHESIA [None]
  - SUICIDAL IDEATION [None]
  - DEPRESSION [None]
  - GENERAL PHYSICAL HEALTH DETERIORATION [None]
  - SOCIAL AVOIDANT BEHAVIOUR [None]
